FAERS Safety Report 7119346-1 (Version None)
Quarter: 2010Q4

REPORT INFORMATION
  Report Type: 
  Country: None (occurrence: None)
  Receive Date: 20101123
  Receipt Date: 20101115
  Transmission Date: 20110411
  Serious: Yes (Hospitalization)
  Sender: FDA-Public Use
  Company Number: CN-JNJFOC-20100900279

PATIENT
  Age: 58 Year
  Sex: Female

DRUGS (3)
  1. TYLENOL COLD [Suspect]
     Indication: PYREXIA
     Route: 048
  2. TYLENOL COLD [Suspect]
     Indication: NASOPHARYNGITIS
     Route: 048
  3. ALL OTHER THERAPEUTIC PRODUCTS [Concomitant]
     Indication: BLOOD PRESSURE

REACTIONS (12)
  - ALANINE AMINOTRANSFERASE INCREASED [None]
  - ALBUMINURIA [None]
  - ASPARTATE AMINOTRANSFERASE INCREASED [None]
  - BLOOD GLUCOSE INCREASED [None]
  - DIZZINESS [None]
  - DRUG ERUPTION [None]
  - DRUG HYPERSENSITIVITY [None]
  - FEELING COLD [None]
  - GAMMA-GLUTAMYLTRANSFERASE INCREASED [None]
  - OCCULT BLOOD POSITIVE [None]
  - OEDEMA PERIPHERAL [None]
  - RENAL INJURY [None]
